FAERS Safety Report 11512120 (Version 1)
Quarter: 2015Q3

REPORT INFORMATION
  Report Type: Spontaneous
  Country: US (occurrence: None)
  Receive Date: 20150904
  Receipt Date: 20150904
  Transmission Date: 20151125
  Serious: Yes (Other)
  Sender: FDA-Public Use
  Company Number: 2014-22656

PATIENT
  Age: 39 Year
  Sex: Female

DRUGS (1)
  1. FENTANYL TRANSDERMAL SYSTEM [Suspect]
     Active Substance: FENTANYL
     Indication: BACK PAIN
     Route: 062
     Dates: start: 201409

REACTIONS (4)
  - Drug ineffective [None]
  - Abdominal pain upper [None]
  - Drug withdrawal syndrome [None]
  - Feeling cold [None]

NARRATIVE: CASE EVENT DATE: 201409
